FAERS Safety Report 23193869 (Version 1)
Quarter: 2023Q4

REPORT INFORMATION
  Report Type: Spontaneous
  Country: US (occurrence: US)
  Receive Date: 20231116
  Receipt Date: 20231116
  Transmission Date: 20240109
  Serious: Yes (Hospitalization)
  Sender: FDA-Public Use
  Company Number: US-BRISTOL-MYERS SQUIBB COMPANY-2023-163109

PATIENT
  Age: 62 Year
  Sex: Female

DRUGS (1)
  1. POMALYST [Suspect]
     Active Substance: POMALIDOMIDE
     Indication: Plasma cell myeloma
     Dosage: FREQUENCY: TAKE 2MG BY MOUTH ONCE DAILY FOR 14 DAYS ON AND 14 DAYS OFF. TAKE WITH OR WITHOUT FOOD.
     Route: 048
     Dates: start: 202110

REACTIONS (3)
  - Hypertension [Unknown]
  - Heart rate increased [Unknown]
  - Off label use [Unknown]
